FAERS Safety Report 5944304-X (Version None)
Quarter: 2008Q4

REPORT INFORMATION
  Report Type: 
  Country: None (occurrence: None)
  Receive Date: 20081105
  Receipt Date: 20081022
  Transmission Date: 20090506
  Serious: Yes (Hospitalization)
  Sender: FDA-Public Use
  Company Number: AZAUS200800347

PATIENT
  Age: 70 Year
  Sex: Male
  Weight: 87 kg

DRUGS (9)
  1. VIDAZA [Suspect]
     Indication: MYELODYSPLASTIC SYNDROME
     Dosage: 75 MG/M2, 5-2-2 REGIMEN, SUBCUTANEOUS
     Route: 058
     Dates: start: 20080825, end: 20080903
  2. ZETIA [Concomitant]
  3. ARANESP [Concomitant]
  4. NEUPOGEN (FILOGRASTIM) [Concomitant]
  5. ALOXI (PALOMOSETRON HYDROCHLORIDE) [Concomitant]
  6. ASA (ACETYLSALICYCLIC ACID) [Concomitant]
  7. LASIX [Concomitant]
  8. METFORMIN HCL [Concomitant]
  9. PRECOSE [Concomitant]

REACTIONS (1)
  - SKIN NECROSIS [None]
